FAERS Safety Report 21511114 (Version 1)
Quarter: 2022Q4

REPORT INFORMATION
  Report Type: Spontaneous
  Country: US (occurrence: US)
  Receive Date: 20221027
  Receipt Date: 20221027
  Transmission Date: 20230112
  Serious: No
  Sender: FDA-Public Use
  Company Number: US-BRISTOL-MYERS SQUIBB COMPANY-2022-125315

PATIENT
  Age: 80 Year
  Sex: Female
  Weight: 58.05 kg

DRUGS (2)
  1. ELIQUIS [Suspect]
     Active Substance: APIXABAN
     Indication: Cerebrovascular accident prophylaxis
     Dosage: TWO TIMES A DAY
     Route: 048
     Dates: start: 2018
  2. Bisoprolol SUMARANTE [Concomitant]
     Indication: Blood pressure measurement
     Route: 065

REACTIONS (3)
  - Hypoaesthesia [Unknown]
  - Pain [Unknown]
  - Secretion discharge [Unknown]

NARRATIVE: CASE EVENT DATE: 20180101
